FAERS Safety Report 12600602 (Version 1)
Quarter: 2016Q3

REPORT INFORMATION
  Report Type: Spontaneous
  Country: IT (occurrence: IT)
  Receive Date: 20160727
  Receipt Date: 20160727
  Transmission Date: 20161109
  Serious: Yes (Life-Threatening)
  Sender: FDA-Public Use
  Company Number: IT-FRESENIUS KABI-FK201604782

PATIENT
  Age: 42 Year
  Sex: Male
  Weight: 108 kg

DRUGS (2)
  1. PROPOFOL 2% FRESENIUS [Suspect]
     Active Substance: PROPOFOL
     Indication: SEDATIVE THERAPY
     Route: 065
     Dates: start: 20160713, end: 20160713
  2. PROPOFOL 1% MCT FRESENIUS [Suspect]
     Active Substance: PROPOFOL
     Indication: SEDATIVE THERAPY
     Route: 042
     Dates: start: 20160713, end: 20160713

REACTIONS (2)
  - Hyperkalaemia [Recovered/Resolved]
  - Lactic acidosis [Recovered/Resolved]

NARRATIVE: CASE EVENT DATE: 20160713
